FAERS Safety Report 9807519 (Version 1)
Quarter: 2014Q1

REPORT INFORMATION
  Report Type: Spontaneous
  Country: US (occurrence: US)
  Receive Date: 20140110
  Receipt Date: 20140110
  Transmission Date: 20141002
  Serious: No
  Sender: FDA-Public Use
  Company Number: US-SANOFI-AVENTIS-2012SA091110

PATIENT
  Age: 63 Year
  Sex: Male

DRUGS (11)
  1. PLAVIX [Suspect]
  2. PLAVIX [Suspect]
  3. COUMADIN [Suspect]
     Indication: STENT PLACEMENT
     Dates: start: 2004
  4. COUMADIN [Suspect]
     Indication: CEREBROVASCULAR ACCIDENT
     Dates: start: 2004
  5. COUMADIN [Suspect]
     Indication: STENT PLACEMENT
     Dates: start: 20121209
  6. COUMADIN [Suspect]
     Indication: CEREBROVASCULAR ACCIDENT
     Dates: start: 20121209
  7. CAPTOPRIL [Concomitant]
  8. LIPITOR /UNK/ [Concomitant]
  9. CORGARD [Concomitant]
  10. ASPIRIN [Concomitant]
  11. PREVACID [Concomitant]

REACTIONS (5)
  - Dry mouth [Not Recovered/Not Resolved]
  - Oral discomfort [Not Recovered/Not Resolved]
  - Product taste abnormal [Not Recovered/Not Resolved]
  - Nausea [Not Recovered/Not Resolved]
  - Tachycardia [Not Recovered/Not Resolved]
